FAERS Safety Report 8941929 (Version 1)
Quarter: 2012Q4

REPORT INFORMATION
  Report Type: 
  Country: US (occurrence: US)
  Receive Date: 20121203
  Receipt Date: 20121203
  Transmission Date: 20130627
  Serious: No
  Sender: FDA-Public Use
  Company Number: US-009507513-1212USA000395

PATIENT
  Age: 6 Year
  Sex: Female
  Weight: 31.75 kg

DRUGS (3)
  1. CLARITIN ORAL SOLUTION [Suspect]
     Indication: SEASONAL ALLERGY
     Dosage: 5 mg, qam
     Route: 048
     Dates: start: 201211
  2. CLARITIN ORAL SOLUTION [Suspect]
     Dosage: 10 mg, Once
     Route: 048
     Dates: start: 20121106
  3. CLARITIN ORAL SOLUTION [Suspect]
     Dosage: 10 mg, Once
     Route: 048
     Dates: start: 20121106

REACTIONS (1)
  - Accidental overdose [Unknown]
